FAERS Safety Report 9338892 (Version 1)
Quarter: 2013Q2

REPORT INFORMATION
  Report Type: Spontaneous
  Country: US (occurrence: None)
  Receive Date: 20130606
  Receipt Date: 20130606
  Transmission Date: 20140414
  Serious: Yes (Hospitalization)
  Sender: FDA-Public Use
  Company Number: None

PATIENT
  Age: 86 Year
  Sex: Male
  Weight: 80.5 kg

DRUGS (1)
  1. VANCOMYCIN [Suspect]
     Indication: UPPER RESPIRATORY TRACT INFECTION
     Route: 042
     Dates: start: 20130407, end: 20130507

REACTIONS (6)
  - Rash [None]
  - Tachypnoea [None]
  - Hypotension [None]
  - Tachycardia [None]
  - Hyperhidrosis [None]
  - Respiratory distress [None]
